FAERS Safety Report 9379900 (Version 1)
Quarter: 2013Q3

REPORT INFORMATION
  Report Type: Spontaneous
  Country: US (occurrence: US)
  Receive Date: 20130702
  Receipt Date: 20130702
  Transmission Date: 20140515
  Serious: Yes (Hospitalization, Other)
  Sender: FDA-Public Use
  Company Number: US-PFIZER INC-2013195164

PATIENT
  Sex: Female

DRUGS (3)
  1. ADVIL [Suspect]
     Indication: BACK PAIN
     Dosage: UNK
  2. ADVIL [Suspect]
     Indication: PAIN IN EXTREMITY
  3. ASPIRIN [Concomitant]
     Dosage: UNK

REACTIONS (4)
  - Haemorrhagic stroke [Unknown]
  - Gastrointestinal disorder [Unknown]
  - Haemorrhage [Unknown]
  - Polyp [Unknown]
